FAERS Safety Report 20479542 (Version 1)
Quarter: 2022Q1

REPORT INFORMATION
  Report Type: Spontaneous
  Country: US (occurrence: None)
  Receive Date: 20220215
  Receipt Date: 20220215
  Transmission Date: 20220423
  Serious: Yes (Disabling, Other)
  Sender: FDA-Public Use
  Company Number: None

PATIENT
  Age: 63 Year
  Sex: Female
  Weight: 63 kg

DRUGS (10)
  1. OLOPATADINE HYDROCHLORIDE [Suspect]
     Active Substance: OLOPATADINE HYDROCHLORIDE
     Indication: Seasonal allergy
     Dosage: OTHER QUANTITY : 1 DROP(S);?FREQUENCY : DAILY;?
     Route: 047
  2. Atorvastatub [Concomitant]
  3. SERTRALINE [Concomitant]
     Active Substance: SERTRALINE HYDROCHLORIDE
  4. Xanex [Concomitant]
  5. ETODOLAC [Concomitant]
     Active Substance: ETODOLAC
  6. VALTREX [Concomitant]
     Active Substance: VALACYCLOVIR HYDROCHLORIDE
  7. VAGIFEM [Concomitant]
     Active Substance: ESTRADIOL
  8. AREDS II [Concomitant]
  9. Magnesium Multi vitamin  B1 [Concomitant]
  10. PYRIDOXINE HYDROCHLORIDE [Concomitant]
     Active Substance: PYRIDOXINE HYDROCHLORIDE

REACTIONS (11)
  - Instillation site reaction [None]
  - Eye swelling [None]
  - Vision blurred [None]
  - Dark circles under eyes [None]
  - Periorbital swelling [None]
  - Central vision loss [None]
  - Neovascular age-related macular degeneration [None]
  - Suspected product quality issue [None]
  - Intraocular pressure increased [None]
  - Product substitution issue [None]
  - Retinal drusen [None]

NARRATIVE: CASE EVENT DATE: 20211230
